FAERS Safety Report 13088434 (Version 1)
Quarter: 2017Q1

REPORT INFORMATION
  Report Type: Spontaneous
  Country: US (occurrence: US)
  Receive Date: 20170104
  Receipt Date: 20170104
  Transmission Date: 20170428
  Serious: Yes (Other)
  Sender: FDA-Public Use
  Company Number: None

PATIENT
  Age: 58 Year
  Sex: Female
  Weight: 78.75 kg

DRUGS (5)
  1. SYNTHROID [Concomitant]
     Active Substance: LEVOTHYROXINE SODIUM
  2. QUETIAPINE FUMARATE XR [Suspect]
     Active Substance: QUETIAPINE FUMARATE
     Indication: BIPOLAR I DISORDER
     Route: 048
     Dates: start: 20161129, end: 20161219
  3. PRAVASTATIN. [Concomitant]
     Active Substance: PRAVASTATIN
  4. VITAMIN D3 [Concomitant]
     Active Substance: CHOLECALCIFEROL
  5. VIT B12 INJ [Concomitant]

REACTIONS (11)
  - Agitation [None]
  - Fear [None]
  - Therapeutic response changed [None]
  - Vomiting projectile [None]
  - Depression [None]
  - Irritability [None]
  - Insomnia [None]
  - Economic problem [None]
  - Product substitution issue [None]
  - Abdominal pain [None]
  - Suicidal ideation [None]

NARRATIVE: CASE EVENT DATE: 20161219
